FAERS Safety Report 6533508-3 (Version None)
Quarter: 2010Q1

REPORT INFORMATION
  Report Type: 
  Country: None (occurrence: None)
  Receive Date: 20100111
  Receipt Date: 20091130
  Transmission Date: 20100710
  Serious: Yes (Death, Other)
  Sender: FDA-Public Use
  Company Number: US-BAXTER-2009BH010937

PATIENT
  Age: 72 Year
  Sex: Male
  Weight: 73 kg

DRUGS (44)
  1. HEPARIN SODIUM INJECTION [Suspect]
     Indication: ANTIPLATELET THERAPY
     Route: 042
     Dates: start: 20080311, end: 20080311
  2. HEPARIN SODIUM INJECTION [Suspect]
     Indication: CATHETERISATION CARDIAC
     Route: 042
     Dates: start: 20080311, end: 20080311
  3. HEPARIN SODIUM INJECTION [Suspect]
     Indication: STENT PLACEMENT
     Route: 042
     Dates: start: 20080311, end: 20080311
  4. HEPARIN SODIUM INJECTION [Suspect]
     Route: 042
     Dates: start: 20080311, end: 20080311
  5. HEPARIN SODIUM INJECTION [Suspect]
     Route: 042
     Dates: start: 20080311, end: 20080311
  6. HEPARIN SODIUM INJECTION [Suspect]
     Route: 042
     Dates: start: 20080311, end: 20080311
  7. HEPARIN SODIUM INJECTION [Suspect]
     Route: 042
     Dates: start: 20080311, end: 20080311
  8. HEPARIN SODIUM INJECTION [Suspect]
     Route: 042
     Dates: start: 20080311, end: 20080311
  9. HEPARIN SODIUM INJECTION [Suspect]
     Route: 042
     Dates: start: 20080311, end: 20080311
  10. HEPARIN SODIUM INJECTION [Suspect]
     Route: 041
     Dates: start: 20080311, end: 20080311
  11. HEPARIN SODIUM INJECTION [Suspect]
     Route: 041
     Dates: start: 20080311, end: 20080311
  12. HEPARIN SODIUM INJECTION [Suspect]
     Route: 041
     Dates: start: 20080311, end: 20080311
  13. HEPARIN SODIUM INJECTION [Suspect]
     Route: 040
     Dates: start: 20080313, end: 20080313
  14. HEPARIN SODIUM INJECTION [Suspect]
     Route: 040
     Dates: start: 20080313, end: 20080313
  15. HEPARIN SODIUM INJECTION [Suspect]
     Route: 040
     Dates: start: 20080313, end: 20080313
  16. HEPARIN SODIUM INJECTION [Suspect]
     Route: 040
     Dates: start: 20080311, end: 20080311
  17. HEPARIN SODIUM INJECTION [Suspect]
     Route: 040
     Dates: start: 20080311, end: 20080311
  18. HEPARIN SODIUM INJECTION [Suspect]
     Route: 040
     Dates: start: 20080311, end: 20080311
  19. HEPARIN SODIUM INJECTION [Suspect]
     Route: 042
     Dates: start: 20080312, end: 20080312
  20. HEPARIN SODIUM INJECTION [Suspect]
     Route: 042
     Dates: start: 20080312, end: 20080312
  21. HEPARIN SODIUM INJECTION [Suspect]
     Route: 042
     Dates: start: 20080312, end: 20080312
  22. HEPARIN SODIUM INJECTION [Suspect]
     Route: 042
     Dates: start: 20080312, end: 20080312
  23. HEPARIN SODIUM INJECTION [Suspect]
     Route: 042
     Dates: start: 20080312, end: 20080312
  24. HEPARIN SODIUM INJECTION [Suspect]
     Route: 042
     Dates: start: 20080312, end: 20080312
  25. HEPARIN SODIUM INJECTION [Suspect]
     Route: 040
     Dates: start: 20080312, end: 20080312
  26. HEPARIN SODIUM INJECTION [Suspect]
     Route: 040
     Dates: start: 20080312, end: 20080312
  27. HEPARIN SODIUM INJECTION [Suspect]
     Route: 040
     Dates: start: 20080312, end: 20080312
  28. HEPARIN SODIUM 5,000 UNITS IN DEXTROSE 5% [Suspect]
     Indication: PROPHYLAXIS
     Route: 041
     Dates: start: 20080312
  29. INTEGRILIN [Suspect]
     Indication: PROPHYLAXIS
     Route: 042
     Dates: start: 20080311
  30. INTEGRILIN [Suspect]
     Indication: ANTIPLATELET THERAPY
     Route: 042
     Dates: start: 20080311
  31. INTEGRILIN [Suspect]
     Route: 041
     Dates: start: 20080311
  32. INTEGRILIN [Suspect]
     Route: 041
     Dates: start: 20080311
  33. INTEGRILIN [Suspect]
     Route: 042
     Dates: start: 20080311
  34. INTEGRILIN [Suspect]
     Route: 042
     Dates: start: 20080311
  35. NORVASK [Concomitant]
     Indication: DRUG USE FOR UNKNOWN INDICATION
     Route: 065
  36. VIAGRA [Concomitant]
     Indication: DRUG USE FOR UNKNOWN INDICATION
     Route: 065
  37. DIOVAN [Concomitant]
     Indication: DRUG USE FOR UNKNOWN INDICATION
     Route: 065
  38. ASPIRIN [Concomitant]
     Indication: DRUG USE FOR UNKNOWN INDICATION
     Route: 048
     Dates: end: 20080313
  39. INTEGRILIN [Concomitant]
     Indication: DRUG USE FOR UNKNOWN INDICATION
     Route: 042
  40. MUCOMYST                                /USA/ [Concomitant]
     Indication: DRUG USE FOR UNKNOWN INDICATION
     Route: 065
  41. SODIUM BICARBONATE [Concomitant]
     Indication: DRUG USE FOR UNKNOWN INDICATION
     Route: 042
  42. VERSED [Concomitant]
     Indication: SEDATION
     Route: 042
  43. PLAVIX [Concomitant]
     Indication: DRUG USE FOR UNKNOWN INDICATION
     Route: 065
     Dates: end: 20080313
  44. MORPHINE [Concomitant]
     Indication: DRUG USE FOR UNKNOWN INDICATION
     Route: 042

REACTIONS (18)
  - BRAIN DEATH [None]
  - CARDIAC ARREST [None]
  - CARDIAC DEATH [None]
  - CARDIOMYOPATHY [None]
  - CEREBRAL ARTERY EMBOLISM [None]
  - DIABETES MELLITUS [None]
  - HAEMORRHAGE INTRACRANIAL [None]
  - HAEMORRHAGIC ANAEMIA [None]
  - HYPERTENSION [None]
  - HYPOTENSION [None]
  - PSEUDOMONAL BACTERAEMIA [None]
  - PUPILLARY LIGHT REFLEX TESTS ABNORMAL [None]
  - PUPILS UNEQUAL [None]
  - RENAL FAILURE ACUTE [None]
  - RESPIRATORY FAILURE [None]
  - SUBARACHNOID HAEMORRHAGE [None]
  - THROMBOLYSIS [None]
  - UNRESPONSIVE TO STIMULI [None]
